FAERS Safety Report 5288472-4 (Version None)
Quarter: 2007Q2

REPORT INFORMATION
  Report Type: 
  Country: None (occurrence: None)
  Receive Date: 20070405
  Receipt Date: 20070330
  Transmission Date: 20071010
  Serious: No
  Sender: FDA-Public Use
  Company Number: 2006UW08331

PATIENT
  Sex: Male
  Weight: 122.7 kg

DRUGS (8)
  1. SEROQUEL [Suspect]
     Indication: SCHIZOPHRENIA
     Route: 048
     Dates: start: 19990401, end: 19990901
  2. SEROQUEL [Suspect]
     Indication: DEPRESSION
     Route: 048
     Dates: start: 19990401, end: 19990901
  3. HALDOL [Concomitant]
  4. RISPERDAL [Concomitant]
  5. THORAZINE [Concomitant]
  6. TRILAFON [Concomitant]
  7. ZYPREXA [Concomitant]
  8. ZOLOFT [Concomitant]

REACTIONS (1)
  - DIABETES MELLITUS [None]
